FAERS Safety Report 16991735 (Version 3)
Quarter: 2023Q2

REPORT INFORMATION
  Report Type: Spontaneous
  Country: JP (occurrence: JP)
  Receive Date: 20191104
  Receipt Date: 20230616
  Transmission Date: 20230721
  Serious: Yes (Other)
  Sender: FDA-Public Use
  Company Number: JP-DSJP-DSJ-2019-142707

PATIENT
  Age: 22 Year
  Sex: Female

DRUGS (1)
  1. EDOXABAN TOSYLATE [Suspect]
     Active Substance: EDOXABAN TOSYLATE
     Indication: Protein S deficiency
     Dosage: UNK
     Route: 048

REACTIONS (3)
  - Premature separation of placenta [Recovered/Resolved]
  - Pulmonary thrombosis [Recovered/Resolved]
  - Maternal exposure during pregnancy [Unknown]
